FAERS Safety Report 8342526-4 (Version None)
Quarter: 2012Q2

REPORT INFORMATION
  Report Type: 
  Country: None (occurrence: None)
  Receive Date: 20120508
  Receipt Date: 20120427
  Transmission Date: 20120825
  Serious: No
  Sender: FDA-Public Use
  Company Number: US-BIOGENIDEC-2012BI015057

PATIENT
  Age: 61 Year
  Sex: Female

DRUGS (2)
  1. TYSABRI [Suspect]
     Indication: MULTIPLE SCLEROSIS
     Route: 042
     Dates: start: 20110518
  2. AVONEX [Concomitant]
     Indication: MULTIPLE SCLEROSIS
     Route: 030
     Dates: start: 20050813

REACTIONS (7)
  - GAIT DISTURBANCE [None]
  - MULTIPLE SCLEROSIS [None]
  - COORDINATION ABNORMAL [None]
  - MENTAL IMPAIRMENT [None]
  - DYSGRAPHIA [None]
  - SLOW SPEECH [None]
  - COGNITIVE DISORDER [None]
